FAERS Safety Report 20970754 (Version 2)
Quarter: 2024Q2

REPORT INFORMATION
  Report Type: Spontaneous
  Country: US (occurrence: US)
  Receive Date: 20220616
  Receipt Date: 20240417
  Transmission Date: 20240716
  Serious: No
  Sender: FDA-Public Use
  Company Number: US-SANOFI-01131383

PATIENT
  Age: 70 Year
  Sex: Female

DRUGS (3)
  1. DUPIXENT [Suspect]
     Active Substance: DUPILUMAB
     Indication: Dermatitis atopic
     Dosage: 300 MG, QOW
     Route: 058
  2. DUPIXENT [Suspect]
     Active Substance: DUPILUMAB
     Indication: Eczema
  3. MEDICAL FOOD [Concomitant]
     Active Substance: MEDICAL FOOD
     Dosage: 630 MG DAILY

REACTIONS (4)
  - Confusional state [Unknown]
  - Speech disorder [Unknown]
  - Disorganised speech [Unknown]
  - Therapeutic product effect incomplete [Unknown]
